FAERS Safety Report 20034856 (Version 2)
Quarter: 2021Q4

REPORT INFORMATION
  Report Type: Report from Study
  Country: CA (occurrence: CA)
  Receive Date: 20211104
  Receipt Date: 20211123
  Transmission Date: 20220303
  Serious: Yes (Hospitalization)
  Sender: FDA-Public Use
  Company Number: CA-JNJFOC-20211054508

PATIENT
  Age: 90 Year
  Sex: Female

DRUGS (11)
  1. BOSENTAN [Suspect]
     Active Substance: BOSENTAN
     Indication: Pulmonary hypertension
     Route: 048
     Dates: start: 20120801
  2. EPREX [Concomitant]
     Active Substance: ERYTHROPOIETIN
  3. METOPROLOL [Concomitant]
     Active Substance: METOPROLOL
  4. PANTOPRAZOLE SODIUM [Concomitant]
     Active Substance: PANTOPRAZOLE SODIUM
  5. INDOMETHACIN [Concomitant]
     Active Substance: INDOMETHACIN
  6. NORVASC [Concomitant]
     Active Substance: AMLODIPINE BESYLATE
  7. ASPIRIN [Concomitant]
     Active Substance: ASPIRIN
  8. LASIX [Concomitant]
     Active Substance: FUROSEMIDE
  9. LOVASTATIN [Concomitant]
     Active Substance: LOVASTATIN
  10. FOLIC ACID [Concomitant]
     Active Substance: FOLIC ACID
  11. ADCIRCA [Concomitant]
     Active Substance: TADALAFIL

REACTIONS (2)
  - Kidney infection [Recovered/Resolved]
  - Sepsis [Recovered/Resolved]
